FAERS Safety Report 9675286 (Version 1)
Quarter: 2013Q4

REPORT INFORMATION
  Report Type: Spontaneous
  Country: DE (occurrence: None)
  Receive Date: 20131105
  Receipt Date: 20131105
  Transmission Date: 20140711
  Serious: Yes (Hospitalization)
  Sender: FDA-Public Use
  Company Number: ACO_39283_2013

PATIENT
  Age: 48 Year
  Sex: Female

DRUGS (2)
  1. FAMPYRA [Suspect]
     Indication: MULTIPLE SCLEROSIS
     Route: 048
  2. SATIVEX [Concomitant]

REACTIONS (1)
  - Hypertension [None]
